FAERS Safety Report 6428645-8 (Version None)
Quarter: 2009Q4

REPORT INFORMATION
  Report Type: 
  Country: None (occurrence: None)
  Receive Date: 20091103
  Receipt Date: 20091028
  Transmission Date: 20100525
  Serious: Yes (Hospitalization)
  Sender: FDA-Public Use
  Company Number: 2009-GWUS-0746

PATIENT
  Sex: Male

DRUGS (2)
  1. ALDARA [Suspect]
     Indication: ACTINIC KERATOSIS
     Dosage: APPLICATION - 2XW - TOPICAL
     Route: 061
     Dates: start: 20090801, end: 20091001
  2. ALDARA [Suspect]
     Indication: ACTINIC KERATOSIS
     Dosage: APPLICATION - 2XW - TOPICAL
     Route: 061
     Dates: start: 20091001

REACTIONS (12)
  - APPLICATION SITE REACTION [None]
  - CHILLS [None]
  - COUGH [None]
  - DYSPNOEA [None]
  - EJECTION FRACTION DECREASED [None]
  - HYPERHIDROSIS [None]
  - INFLUENZA LIKE ILLNESS [None]
  - LOSS OF CONSCIOUSNESS [None]
  - MALAISE [None]
  - PYREXIA [None]
  - RESPIRATORY DISORDER [None]
  - SKIN REACTION [None]
